FAERS Safety Report 11258393 (Version 2)
Quarter: 2015Q3

REPORT INFORMATION
  Report Type: Spontaneous
  Country: US (occurrence: BR)
  Receive Date: 20150710
  Receipt Date: 20150720
  Transmission Date: 20151125
  Serious: Yes (Hospitalization)
  Sender: FDA-Public Use
  Company Number: US-BIOGENIDEC-2015BI094267

PATIENT
  Age: 33 Year
  Sex: Male
  Weight: 85 kg

DRUGS (3)
  1. DORFELX [Concomitant]
  2. AVONEX [Suspect]
     Active Substance: INTERFERON BETA-1A
     Indication: MULTIPLE SCLEROSIS
     Route: 030
     Dates: start: 2004, end: 200811
  3. PARACETAMOL [Concomitant]
     Active Substance: ACETAMINOPHEN

REACTIONS (16)
  - Strabismus [Unknown]
  - Oedema peripheral [Unknown]
  - Multiple sclerosis relapse [Recovered/Resolved]
  - Muscle rigidity [Not Recovered/Not Resolved]
  - Dizziness [Unknown]
  - Nervousness [Recovered/Resolved]
  - Pain [Not Recovered/Not Resolved]
  - Musculoskeletal disorder [Unknown]
  - Coordination abnormal [Not Recovered/Not Resolved]
  - Asthenia [Unknown]
  - Headache [Unknown]
  - Diplopia [Unknown]
  - Mobility decreased [Unknown]
  - Eye oedema [Unknown]
  - Paraesthesia [Recovered/Resolved]
  - Type 2 diabetes mellitus [Not Recovered/Not Resolved]

NARRATIVE: CASE EVENT DATE: 2007
